FAERS Safety Report 4949443-8 (Version None)
Quarter: 2006Q1

REPORT INFORMATION
  Report Type: 
  Country: None (occurrence: None)
  Receive Date: 20060315
  Receipt Date: 20060310
  Transmission Date: 20060701
  Serious: Yes (Death)
  Sender: FDA-Public Use
  Company Number: S04-USA-03204-01

PATIENT
  Age: 91 Year
  Sex: Male
  Weight: 63.05 kg

DRUGS (8)
  1. LEXAPRO [Suspect]
     Indication: ABNORMAL BEHAVIOUR
     Dosage: 10 MG QD PO
     Route: 048
     Dates: start: 20040101, end: 20040526
  2. DIGOXIN [Suspect]
     Dates: end: 20040526
  3. INDERAL [Concomitant]
  4. CELEBREX [Concomitant]
  5. NEXIUM [Concomitant]
  6. STATIN MEDICATION [Concomitant]
  7. ENLARGED HEART MEDICATION [Concomitant]
  8. VITAMINS NOS [Concomitant]

REACTIONS (7)
  - CONDITION AGGRAVATED [None]
  - DECREASED APPETITE [None]
  - DEHYDRATION [None]
  - LOSS OF CONSCIOUSNESS [None]
  - RENAL FAILURE [None]
  - THERAPEUTIC AGENT TOXICITY [None]
  - WEIGHT DECREASED [None]
